FAERS Safety Report 22080273 (Version 1)
Quarter: 2023Q1

REPORT INFORMATION
  Report Type: Report from Study
  Country: AT (occurrence: AT)
  Receive Date: 20230309
  Receipt Date: 20230309
  Transmission Date: 20230417
  Serious: Yes (Other)
  Sender: FDA-Public Use
  Company Number: AT-JNJFOC-20230260353

PATIENT

DRUGS (1)
  1. SPRAVATO [Suspect]
     Active Substance: ESKETAMINE
     Indication: Product used for unknown indication
     Dates: start: 20221213, end: 20230117

REACTIONS (3)
  - Hallucination [Recovered/Resolved]
  - Nightmare [Recovered/Resolved]
  - Somnolence [Recovered/Resolved]
